FAERS Safety Report 9052308 (Version 3)
Quarter: 2013Q3

REPORT INFORMATION
  Report Type: Spontaneous
  Country: FR (occurrence: FR)
  Receive Date: 20130206
  Receipt Date: 20130730
  Transmission Date: 20140515
  Serious: Yes (Other)
  Sender: FDA-Public Use
  Company Number: FR-PFIZER INC-2013041444

PATIENT
  Age: 85 Year
  Sex: Female

DRUGS (5)
  1. ALPRESS [Suspect]
     Dosage: 1 DF, 1X/DAY
     Route: 048
     Dates: start: 20120919, end: 20120922
  2. BISOPROLOL FUMARATE [Suspect]
     Dosage: 1 DF, 1X/DAY
     Route: 048
     Dates: start: 2000
  3. OLMETEC [Concomitant]
     Dosage: UNK
  4. FLUDEX [Concomitant]
  5. AMIODARONE [Concomitant]

REACTIONS (1)
  - Psoriasis [Recovering/Resolving]
